FAERS Safety Report 5470490-4 (Version None)
Quarter: 2007Q3

REPORT INFORMATION
  Report Type: 
  Country: None (occurrence: None)
  Receive Date: 20070820
  Receipt Date: 20070612
  Transmission Date: 20080115
  Serious: No
  Sender: FDA-Public Use
  Company Number: WAES 0706USA02571

PATIENT
  Age: 75 Year
  Sex: Male
  Weight: 72.1219 kg

DRUGS (5)
  1. JANUVIA [Suspect]
     Indication: TYPE 2 DIABETES MELLITUS
     Dosage: /DAILY/PO; 100 MG/DAILY/PO; DAILY/PO
     Route: 048
     Dates: start: 20070529, end: 20070529
  2. JANUVIA [Suspect]
     Indication: TYPE 2 DIABETES MELLITUS
     Dosage: /DAILY/PO; 100 MG/DAILY/PO; DAILY/PO
     Route: 048
     Dates: start: 20070530, end: 20070530
  3. JANUVIA [Suspect]
     Indication: TYPE 2 DIABETES MELLITUS
     Dosage: /DAILY/PO; 100 MG/DAILY/PO; DAILY/PO
     Route: 048
     Dates: start: 20070531
  4. LOTREL [Concomitant]
  5. MAXZIDE [Concomitant]

REACTIONS (3)
  - BLOOD GLUCOSE DECREASED [None]
  - DIZZINESS [None]
  - WRONG TECHNIQUE IN DRUG USAGE PROCESS [None]
